FAERS Safety Report 25301166 (Version 1)
Quarter: 2025Q2

REPORT INFORMATION
  Report Type: Spontaneous
  Country: US (occurrence: US)
  Receive Date: 20250512
  Receipt Date: 20250512
  Transmission Date: 20250717
  Serious: No
  Sender: UCB
  Company Number: US-UCBSA-2024059816

PATIENT
  Sex: Male
  Weight: 75.737 kg

DRUGS (1)
  1. CIMZIA [Suspect]
     Active Substance: CERTOLIZUMAB PEGOL
     Indication: Illness
     Dosage: 400 MILLIGRAM, EV 4 WEEKS
     Route: 058

REACTIONS (3)
  - Pain [Not Recovered/Not Resolved]
  - Therapy interrupted [Unknown]
  - Product distribution issue [Unknown]

NARRATIVE: CASE EVENT DATE: 20240101
